FAERS Safety Report 7961150-6 (Version None)
Quarter: 2011Q4

REPORT INFORMATION
  Report Type: 
  Country: None (occurrence: None)
  Receive Date: 20111207
  Receipt Date: 20111202
  Transmission Date: 20120403
  Serious: Yes (Hospitalization)
  Sender: FDA-Public Use
  Company Number: JP-PFIZER INC-2011077555

PATIENT
  Age: 71 Year
  Sex: Female

DRUGS (12)
  1. MYSER [Concomitant]
     Dosage: UNK
  2. OMEPRAZOLE [Concomitant]
     Dosage: UNK
  3. EPADEL [Concomitant]
     Dosage: UNK
  4. CAPSAICIN/CAMPHOR/METHYL SALICYLATE [Concomitant]
     Dosage: UNK
  5. SUNITINIB MALATE [Suspect]
     Dosage: 37.5 MG, UNK
     Dates: start: 20091110, end: 20091217
  6. SUNITINIB MALATE [Suspect]
     Dosage: 25 MG, UNK
     Dates: start: 20100108, end: 20110330
  7. AZUNOL [Concomitant]
     Dosage: UNK
  8. LEVOTHYROXINE SODIUM [Concomitant]
     Dosage: UNK
  9. SUNITINIB MALATE [Suspect]
     Indication: RENAL CELL CARCINOMA
     Dosage: 50 MG, 1X/DAY
     Route: 048
     Dates: start: 20091016, end: 20091028
  10. LOXONIN [Concomitant]
     Dosage: UNK
  11. BONALFA [Concomitant]
     Dosage: UNK
  12. INSIDE [Concomitant]
     Dosage: UNK

REACTIONS (1)
  - HERPES ZOSTER [None]
